FAERS Safety Report 9627138 (Version 2)
Quarter: 2013Q4

REPORT INFORMATION
  Report Type: Spontaneous
  Country: TW (occurrence: TW)
  Receive Date: 20131016
  Receipt Date: 20131016
  Transmission Date: 20140711
  Serious: Yes (Hospitalization)
  Sender: FDA-Public Use
  Company Number: TW-ABBVIE-13P-153-1143887-00

PATIENT
  Age: 56 Year
  Sex: Female
  Weight: 45 kg

DRUGS (1)
  1. HUMIRA [Suspect]
     Indication: RHEUMATOID ARTHRITIS
     Route: 058
     Dates: start: 20130730, end: 20130904

REACTIONS (2)
  - Lower respiratory tract inflammation [Recovered/Resolved]
  - Lung infiltration [Recovered/Resolved]
